FAERS Safety Report 21864674 (Version 1)
Quarter: 2023Q1

REPORT INFORMATION
  Report Type: Spontaneous
  Country: US (occurrence: US)
  Receive Date: 20230116
  Receipt Date: 20230116
  Transmission Date: 20230418
  Serious: No
  Sender: FDA-Public Use
  Company Number: US-drreddys-SPO/USA/22/0158535

PATIENT
  Age: 84 Year
  Sex: Male

DRUGS (8)
  1. LENALIDOMIDE [Suspect]
     Active Substance: LENALIDOMIDE
     Indication: Plasma cell myeloma
     Route: 048
     Dates: start: 20221018
  2. LASIX TAB 20MG [Concomitant]
     Indication: Product used for unknown indication
  3. QUINAPRIL HC TAB 40MG [Concomitant]
     Indication: Product used for unknown indication
  4. REPAGLINIDE TAB 2MG [Concomitant]
     Indication: Product used for unknown indication
  5. TOPROL XL TB2 200MG [Concomitant]
     Indication: Product used for unknown indication
  6. ACYCLOVIR [Concomitant]
     Active Substance: ACYCLOVIR
     Indication: Product used for unknown indication
  7. DEXAMETHASONE [Concomitant]
     Active Substance: DEXAMETHASONE
     Indication: Product used for unknown indication
  8. SIMVASTATIN [Concomitant]
     Active Substance: SIMVASTATIN
     Indication: Product used for unknown indication

REACTIONS (6)
  - Pollakiuria [Unknown]
  - Abdominal pain upper [Unknown]
  - Oropharyngeal pain [Unknown]
  - Malaise [Unknown]
  - Product dose omission issue [Unknown]
  - Product use issue [Unknown]
